FAERS Safety Report 4608948-X (Version None)
Quarter: 2005Q1

REPORT INFORMATION
  Report Type: 
  Country: None (occurrence: None)
  Receive Date: 20050311
  Receipt Date: 20050225
  Transmission Date: 20050727
  Serious: Yes (Death, Hospitalization)
  Sender: FDA-Public Use
  Company Number: 1999-BP-01593

PATIENT
  Age: 37 Year
  Sex: Female
  Weight: 75.5 kg

DRUGS (6)
  1. VIRAMUNE [Suspect]
     Indication: HIV INFECTION
     Dosage: 400 MG (1 TAB BID), PO
     Route: 048
     Dates: start: 19991022, end: 19991118
  2. LAMIVUDINE (BLIND) [Concomitant]
  3. ZERIT [Concomitant]
  4. ACETAMINOPHEN [Concomitant]
  5. VITAMIN B COMPLEX (B-KOMPLEX ^LECIVA^) [Concomitant]
  6. EMTRICITABINE (BLIND) [Concomitant]

REACTIONS (13)
  - BLOOD AMYLASE INCREASED [None]
  - BLOOD BICARBONATE DECREASED [None]
  - BLOOD CREATINE PHOSPHOKINASE INCREASED [None]
  - BLOOD SODIUM DECREASED [None]
  - GASTROENTERITIS [None]
  - GENERAL PHYSICAL HEALTH DETERIORATION [None]
  - HEPATIC ENCEPHALOPATHY [None]
  - HEPATIC FAILURE [None]
  - HEPATITIS ACUTE [None]
  - INTERNATIONAL NORMALISED RATIO INCREASED [None]
  - PNEUMONIA [None]
  - RASH [None]
  - RENAL FAILURE ACUTE [None]
